FAERS Safety Report 5515777-1 (Version None)
Quarter: 2007Q4

REPORT INFORMATION
  Report Type: 
  Country: None (occurrence: None)
  Receive Date: 20071109
  Receipt Date: 20071024
  Transmission Date: 20080405
  Serious: Yes (Death)
  Sender: FDA-Public Use
  Company Number: GXKR2007GB09093

PATIENT
  Age: 89 Year
  Sex: Male

DRUGS (2)
  1. PHENOXYMETHYLPENICILLIN (NGX)(PHENOXYMETHYLPENICILLIN (= PENICILLIN V) [Suspect]
     Indication: CELLULITIS
  2. CLOXACILLIN BENZATHINE [Suspect]
     Indication: CELLULITIS

REACTIONS (3)
  - CEREBROVASCULAR ACCIDENT [None]
  - CIRCULATORY COLLAPSE [None]
  - PSEUDOMEMBRANOUS COLITIS [None]
